FAERS Safety Report 9057856 (Version 1)
Quarter: 2013Q1

REPORT INFORMATION
  Report Type: Spontaneous
  Country: US (occurrence: None)
  Receive Date: 20130204
  Receipt Date: 20130204
  Transmission Date: 20140127
  Serious: Yes (Life-Threatening, Hospitalization, Disabling)
  Sender: FDA-Public Use
  Company Number: None

PATIENT
  Age: 70 Year
  Sex: Male
  Weight: 78.47 kg

DRUGS (1)
  1. PROAIR [Suspect]
     Indication: RESPIRATORY DISTRESS
     Dosage: 2 PUFFS 2 TIMES A DAY INHAL
     Dates: start: 20121215, end: 20121218

REACTIONS (4)
  - Palpitations [None]
  - Cardiac failure congestive [None]
  - Heart rate increased [None]
  - Atrial flutter [None]
